FAERS Safety Report 6682259-3 (Version None)
Quarter: 2010Q2

REPORT INFORMATION
  Report Type: 
  Country: None (occurrence: None)
  Receive Date: 20100414
  Receipt Date: 20100414
  Transmission Date: 20101027
  Serious: Yes (Disabling)
  Sender: FDA-Public Use
  Company Number: None

PATIENT
  Sex: Female
  Weight: 141.5223 kg

DRUGS (2)
  1. DEPAKOTE [Suspect]
     Indication: BIPOLAR DISORDER
     Dosage: 500 MG 2 X DAY ORAL
     Route: 048
     Dates: start: 19961001
  2. LISINOPRIL [Suspect]
     Indication: PROPHYLAXIS
     Dosage: 2.5 MG 1 X DAY ORAL
     Route: 048
     Dates: start: 20080101, end: 20100201

REACTIONS (3)
  - ALOPECIA [None]
  - COUGH [None]
  - TREMOR [None]
